FAERS Safety Report 18771320 (Version 1)
Quarter: 2021Q1

REPORT INFORMATION
  Report Type: Spontaneous
  Country: US (occurrence: US)
  Receive Date: 20210121
  Receipt Date: 20210121
  Transmission Date: 20210419
  Serious: Yes (Other)
  Sender: FDA-Public Use
  Company Number: US-TEVA-2021-US-1870017

PATIENT
  Age: 39 Year
  Sex: Male

DRUGS (3)
  1. HEPARIN [Interacting]
     Active Substance: HEPARIN SODIUM
     Indication: HYPERSENSITIVITY VASCULITIS
     Route: 042
  2. FLUCONAZOLE. [Suspect]
     Active Substance: FLUCONAZOLE
     Indication: CANDIDA INFECTION
     Route: 065
  3. PREDNISONE. [Concomitant]
     Active Substance: PREDNISONE
     Indication: ACUTE KIDNEY INJURY
     Route: 065

REACTIONS (2)
  - Hyperkalaemia [Recovering/Resolving]
  - Drug interaction [Recovering/Resolving]
